FAERS Safety Report 21809463 (Version 1)
Quarter: 2023Q1

REPORT INFORMATION
  Report Type: Report from Study
  Country: US (occurrence: US)
  Receive Date: 20230103
  Receipt Date: 20230103
  Transmission Date: 20230417
  Serious: Yes (Other)
  Sender: FDA-Public Use
  Company Number: US-UCBSA-2022033755

PATIENT
  Sex: Female

DRUGS (2)
  1. CERTOLIZUMAB PEGOL [Suspect]
     Active Substance: CERTOLIZUMAB PEGOL
     Indication: Rheumatoid arthritis
     Dosage: UNK
     Dates: start: 20220523
  2. METHOTREXATE [Concomitant]
     Active Substance: METHOTREXATE
     Indication: Product used for unknown indication

REACTIONS (7)
  - Knee arthroplasty [Not Recovered/Not Resolved]
  - Fluid retention [Not Recovered/Not Resolved]
  - Movement disorder [Not Recovered/Not Resolved]
  - Drug ineffective [Unknown]
  - Weight loss diet [Not Recovered/Not Resolved]
  - Influenza [Not Recovered/Not Resolved]
  - SARS-CoV-2 test negative [Unknown]

NARRATIVE: CASE EVENT DATE: 20220101
